FAERS Safety Report 6699736-1 (Version None)
Quarter: 2010Q2

REPORT INFORMATION
  Report Type: 
  Country: None (occurrence: None)
  Receive Date: 20100428
  Receipt Date: 20100426
  Transmission Date: 20101027
  Serious: Yes (Other)
  Sender: FDA-Public Use
  Company Number: US-RB-007857-10

PATIENT
  Age: 40 Year
  Sex: Female

DRUGS (1)
  1. MUCINEX D [Suspect]
     Dosage: TOOK ONE TABLET A DAY FOR 2 DAYS
     Route: 048
     Dates: start: 20100401

REACTIONS (5)
  - ABDOMINAL PAIN UPPER [None]
  - DIZZINESS [None]
  - DRUG INEFFECTIVE [None]
  - HALLUCINATION [None]
  - HEADACHE [None]
